FAERS Safety Report 15111229 (Version 1)
Quarter: 2018Q3

REPORT INFORMATION
  Report Type: Report from Study
  Country: US (occurrence: US)
  Receive Date: 20180705
  Receipt Date: 20180705
  Transmission Date: 20181010
  Serious: Yes (Hospitalization, Other)
  Sender: FDA-Public Use
  Company Number: US-SAKK-2018SA159542AA

PATIENT
  Age: 78 Year
  Sex: Male

DRUGS (1)
  1. INSULIN GLARGINE [Suspect]
     Active Substance: INSULIN GLARGINE
     Indication: TYPE 2 DIABETES MELLITUS
     Dosage: 60 DF, BID
     Route: 058

REACTIONS (3)
  - Bladder neoplasm surgery [Unknown]
  - Bladder cancer [Not Recovered/Not Resolved]
  - Blood urine present [Recovered/Resolved]

NARRATIVE: CASE EVENT DATE: 20180430
